FAERS Safety Report 13616608 (Version 1)
Quarter: 2017Q2

REPORT INFORMATION
  Report Type: Spontaneous
  Country: US (occurrence: US)
  Receive Date: 20170606
  Receipt Date: 20170606
  Transmission Date: 20170830
  Serious: No
  Sender: FDA-Public Use
  Company Number: US-SA-2016SA098684

PATIENT
  Age: 53 Year
  Sex: Male

DRUGS (9)
  1. TOUJEO [Concomitant]
     Active Substance: INSULIN GLARGINE
     Dosage: DOSE:24 UNIT(S)
     Dates: start: 20160415
  2. SOLOSTAR [Concomitant]
     Active Substance: DEVICE
     Dates: start: 20160415
  3. LANTUS [Suspect]
     Active Substance: INSULIN GLARGINE
     Indication: TYPE 2 DIABETES MELLITUS
     Dosage: DOSE:20 UNIT(S)
     Route: 065
     Dates: start: 20160510
  4. TOUJEO [Concomitant]
     Active Substance: INSULIN GLARGINE
     Dosage: DOSE:36 UNIT(S)
     Dates: start: 20160510, end: 20160510
  5. SOLOSTAR [Concomitant]
     Active Substance: DEVICE
     Dates: start: 20160510, end: 20160510
  6. SOLOSTAR [Concomitant]
     Active Substance: DEVICE
     Dates: start: 20160505
  7. TOUJEO [Concomitant]
     Active Substance: INSULIN GLARGINE
     Dosage: DOSE:32 UNIT(S)
     Dates: start: 20160505
  8. LANTUS [Suspect]
     Active Substance: INSULIN GLARGINE
     Indication: TYPE 2 DIABETES MELLITUS
     Dosage: DOSE:25 UNIT(S)
     Route: 065
     Dates: start: 201605
  9. METFORMIN [Concomitant]
     Active Substance: METFORMIN HYDROCHLORIDE

REACTIONS (2)
  - Blood glucose decreased [Unknown]
  - Malaise [Unknown]
